FAERS Safety Report 12701127 (Version 1)
Quarter: 2016Q3

REPORT INFORMATION
  Report Type: Spontaneous
  Country: US (occurrence: None)
  Receive Date: 20160830
  Receipt Date: 20160830
  Transmission Date: 20161109
  Serious: No
  Sender: FDA-Public Use
  Company Number: None

PATIENT
  Age: 22 Year
  Sex: Female
  Weight: 104.33 kg

DRUGS (2)
  1. IMPLANON [Suspect]
     Active Substance: ETONOGESTREL
     Dates: start: 20120615, end: 20131001
  2. L-THEANINE [Concomitant]
     Active Substance: DIETARY SUPPLEMENT

REACTIONS (17)
  - Headache [None]
  - Irritability [None]
  - Skin striae [None]
  - Device deployment issue [None]
  - Blood pressure increased [None]
  - Blood cholesterol increased [None]
  - Device breakage [None]
  - Thyroid disorder [None]
  - Feeling abnormal [None]
  - Adverse drug reaction [None]
  - Mood swings [None]
  - Weight increased [None]
  - Malaise [None]
  - Infertility [None]
  - Haemorrhage [None]
  - Nausea [None]
  - Depression [None]

NARRATIVE: CASE EVENT DATE: 20120615
